FAERS Safety Report 9661235 (Version 2)
Quarter: 2013Q4

REPORT INFORMATION
  Report Type: Spontaneous
  Country: US (occurrence: US)
  Receive Date: 20131031
  Receipt Date: 20131031
  Transmission Date: 20140711
  Serious: Yes (Other)
  Sender: FDA-Public Use
  Company Number: US-SA-CERZ-1001886

PATIENT
  Age: 34 Year
  Sex: Female
  Weight: 58.96 kg

DRUGS (4)
  1. CEREZYME [Suspect]
     Indication: GAUCHER^S DISEASE
     Dosage: 2800 U, Q2W DOSE:2800 UNIT(S)
     Route: 042
     Dates: start: 2001
  2. DIPHENHYDRAMINE HYDROCHLORIDE [Concomitant]
     Indication: PREMEDICATION
     Dosage: 25 MG, Q2W
     Route: 048
  3. RANITIDINE HYDROCHLORIDE [Concomitant]
     Indication: GASTROOESOPHAGEAL REFLUX DISEASE
     Dosage: UNK
     Dates: start: 20110302
  4. PRENATAL VITAMINS [Concomitant]
     Indication: PREGNANCY
     Dates: start: 20110104, end: 20110304

REACTIONS (2)
  - Haemorrhage [Recovered/Resolved]
  - Exposure during pregnancy [Unknown]
